FAERS Safety Report 20668718 (Version 1)
Quarter: 2022Q2

REPORT INFORMATION
  Report Type: Spontaneous
  Country: US (occurrence: None)
  Receive Date: 20220404
  Receipt Date: 20220404
  Transmission Date: 20220721
  Serious: Yes (Death, Congenital Anomaly)
  Sender: FDA-Public Use
  Company Number: 2022A134428

PATIENT

DRUGS (2)
  1. SEROQUEL [Suspect]
     Active Substance: QUETIAPINE FUMARATE
     Indication: Sleep disorder
     Dosage: BETWEEN 800 MG AND 1000 MG
     Route: 064
     Dates: start: 2003, end: 2018
  2. QUETIAPINE [Suspect]
     Active Substance: QUETIAPINE
     Indication: Sleep disorder
     Dosage: BETWEEN 800 MG AND 1000 MG
     Dates: start: 2003, end: 2018

REACTIONS (2)
  - Foetal growth abnormality [Fatal]
  - Foetal death [Fatal]

NARRATIVE: CASE EVENT DATE: 20030101
